FAERS Safety Report 17135765 (Version 10)
Quarter: 2020Q3

REPORT INFORMATION
  Report Type: Report from Study
  Country: CO (occurrence: CO)
  Receive Date: 20191210
  Receipt Date: 20200902
  Transmission Date: 20201102
  Serious: Yes (Other)
  Sender: FDA-Public Use
  Company Number: CO-BRISTOL-MYERS SQUIBB COMPANY-BMS-2019-117347

PATIENT
  Age: 41 Year
  Sex: Female

DRUGS (3)
  1. ABATACEPT [Suspect]
     Active Substance: ABATACEPT
     Indication: RHEUMATOID ARTHRITIS
     Dosage: 750 MILLIGRAM, EVERY 17 DAYS
     Route: 042
     Dates: start: 20160810
  2. ABATACEPT [Suspect]
     Active Substance: ABATACEPT
     Dosage: 500 MILLIGRAM, Q4WK
     Route: 042
     Dates: start: 20160810
  3. ABATACEPT [Suspect]
     Active Substance: ABATACEPT
     Dosage: 750 MG EVERY 28 DAYS
     Route: 042
     Dates: start: 20200814

REACTIONS (13)
  - Rhinitis [Unknown]
  - Oedema peripheral [Recovering/Resolving]
  - Rheumatoid arthritis [Unknown]
  - Arthralgia [Recovering/Resolving]
  - Pain [Recovering/Resolving]
  - Inflammation [Recovering/Resolving]
  - Arthritis [Recovering/Resolving]
  - Intentional product use issue [Recovered/Resolved]
  - Sinusitis [Recovering/Resolving]
  - Deafness [Unknown]
  - Pain in extremity [Recovering/Resolving]
  - Treatment noncompliance [Unknown]
  - Off label use [Recovering/Resolving]

NARRATIVE: CASE EVENT DATE: 20191130
